FAERS Safety Report 6576821-6 (Version None)
Quarter: 2010Q1

REPORT INFORMATION
  Report Type: 
  Country: None (occurrence: None)
  Receive Date: 20100210
  Receipt Date: 20100202
  Transmission Date: 20100710
  Serious: Yes (Other)
  Sender: FDA-Public Use
  Company Number: US-SANOFI-AVENTIS-2010SA006712

PATIENT
  Age: 58 Year
  Sex: Female

DRUGS (1)
  1. LANTUS [Suspect]
     Dosage: SLIDING SCALE TO BRING DOWN HER BS AT NIGHT
     Route: 058
     Dates: start: 20040101

REACTIONS (1)
  - BREAST CANCER [None]
